FAERS Safety Report 7073077-5 (Version None)
Quarter: 2010Q4

REPORT INFORMATION
  Report Type: 
  Country: None (occurrence: None)
  Receive Date: 20101029
  Receipt Date: 20100420
  Transmission Date: 20110411
  Serious: No
  Sender: FDA-Public Use
  Company Number: A0855901A

PATIENT
  Age: 58 Year
  Sex: Female

DRUGS (3)
  1. ADVAIR DISKUS 100/50 [Suspect]
     Indication: CHRONIC OBSTRUCTIVE PULMONARY DISEASE
     Dosage: 1PUFF TWICE PER DAY
     Route: 055
     Dates: start: 20100416, end: 20100417
  2. PREDNISONE [Concomitant]
  3. UNSPECIFIED MEDICATIONS [Concomitant]

REACTIONS (3)
  - DYSPNOEA [None]
  - SWOLLEN TONGUE [None]
  - UPPER RESPIRATORY TRACT INFECTION [None]
